FAERS Safety Report 6067486-0 (Version None)
Quarter: 2009Q1

REPORT INFORMATION
  Report Type: 
  Country: None (occurrence: None)
  Receive Date: 20090205
  Receipt Date: 20090127
  Transmission Date: 20090719
  Serious: Yes (Hospitalization, Other)
  Sender: FDA-Public Use
  Company Number: BE-PFIZER INC-2009159538

PATIENT

DRUGS (5)
  1. ATORVASTATIN CALCIUM [Suspect]
     Indication: DIABETES MELLITUS
     Dosage: UNK
     Dates: start: 20060527
  2. ATORVASTATIN CALCIUM [Suspect]
     Indication: HYPERCHOLESTEROLAEMIA
  3. ATORVASTATIN CALCIUM [Suspect]
     Indication: HEPATIC STEATOSIS
  4. GLIQUIDONE [Suspect]
     Indication: DIABETES MELLITUS
     Dosage: UNK
     Dates: start: 20060527
  5. METFORMIN [Suspect]
     Indication: DIABETES MELLITUS
     Dosage: UNK
     Dates: start: 20060626

REACTIONS (5)
  - BILE DUCT NECROSIS [None]
  - CHOLANGITIS [None]
  - HEPATIC FAILURE [None]
  - HEPATITIS CHOLESTATIC [None]
  - HYPERGLYCAEMIA [None]
